FAERS Safety Report 4692174-2 (Version None)
Quarter: 2005Q2

REPORT INFORMATION
  Report Type: 
  Country: None (occurrence: None)
  Receive Date: 20050614
  Receipt Date: 20050603
  Transmission Date: 20051028
  Serious: Yes (Hospitalization)
  Sender: FDA-Public Use
  Company Number: A-CH2002-00611

PATIENT
  Age: 55 Year
  Sex: Male

DRUGS (6)
  1. BOSENTAN(BOSENTAN TABLET 62.5 MG)(BOSENTAN) TABLET [Suspect]
     Indication: PULMONARY HYPERTENSION
     Dosage: SEE IMAGE, ORAL
     Route: 048
     Dates: start: 20020822, end: 20020829
  2. BOSENTAN(BOSENTAN TABLET 62.5 MG)(BOSENTAN) TABLET [Suspect]
     Indication: PULMONARY HYPERTENSION
     Dosage: SEE IMAGE, ORAL
     Route: 048
     Dates: start: 20020829, end: 20020910
  3. WARFARIN SODIUM [Concomitant]
  4. LANIRAPID (METILDIGOXIN) [Concomitant]
  5. MARZULENE (SODIUM GUALENATE) [Concomitant]
  6. PROTECADIN [Concomitant]

REACTIONS (9)
  - ALANINE AMINOTRANSFERASE INCREASED [None]
  - ASPARTATE AMINOTRANSFERASE INCREASED [None]
  - BLOOD ALKALINE PHOSPHATASE INCREASED [None]
  - BLOOD BILIRUBIN INCREASED [None]
  - DECREASED APPETITE [None]
  - GAMMA-GLUTAMYLTRANSFERASE INCREASED [None]
  - HEPATIC FUNCTION ABNORMAL [None]
  - NASOPHARYNGITIS [None]
  - PYREXIA [None]
